FAERS Safety Report 9462888 (Version 1)
Quarter: 2013Q3

REPORT INFORMATION
  Report Type: Spontaneous
  Country: FR (occurrence: None)
  Receive Date: 20130814
  Receipt Date: 20130814
  Transmission Date: 20140515
  Serious: Yes (Other)
  Sender: FDA-Public Use
  Company Number: 1839913

PATIENT
  Age: 10 Year
  Sex: Male
  Weight: 43 kg

DRUGS (11)
  1. VINCRISTINE SULFATE [Suspect]
     Indication: ACUTE LYMPHOCYTIC LEUKAEMIA
     Dosage: 1.9 MG MILLIGRAMS (1 CYCLICAL) INTRAVENOUS (NOT OTHERWISE SPECIFIED)?
     Route: 042
     Dates: start: 20130620, end: 20130711
  2. KIDROLASE [Suspect]
     Indication: PRODUCT USED FOR UNKNOWN INDICATION
     Dosage: 7500 IU INTERNATIONAL UNIT(S), 1 CYCLICAL, INTRAVENOUS (NOT OTHERWISE SPECIFIED)?
     Route: 042
     Dates: start: 20130624, end: 20130710
  3. CERUBIDINE [Suspect]
     Indication: ACUTE LYMPHOCYTIC LEUKAEMIA
     Dosage: 50 MG MILLIGRAM(S) (1 CYCLICAL) INTRAVENOUS (NOT OTHERWISE SPECIFIED)
     Route: 042
     Dates: start: 20130620, end: 20130704
  4. METHOTREXATE [Suspect]
     Indication: ACUTE LYMPHOCYTIC LEUKAEMIA
     Route: 037
     Dates: start: 20130614, end: 20130701
  5. ARACYTINE [Suspect]
     Indication: ACUTE LYMPHOCYTIC LEUKAEMIA
     Dosage: UNKNOWN, UNKNOWN, INTRATHECAL?
     Route: 037
     Dates: start: 20130624, end: 20130701
  6. PARACETAMOL [Concomitant]
  7. LOVENOX [Concomitant]
  8. NALBUPHINE [Concomitant]
  9. BACTRIM [Concomitant]
  10. FORTUM /00559701/ [Concomitant]
  11. VANCOMYCIN [Concomitant]

REACTIONS (8)
  - Abdominal pain [None]
  - Pyrexia [None]
  - Blood bilirubin increased [None]
  - Aspartate aminotransferase increased [None]
  - Alanine aminotransferase increased [None]
  - Blood alkaline phosphatase increased [None]
  - Gamma-glutamyltransferase increased [None]
  - Prothrombin level increased [None]
